FAERS Safety Report 25590913 (Version 1)
Quarter: 2025Q3

REPORT INFORMATION
  Report Type: Spontaneous
  Country: US (occurrence: None)
  Receive Date: 20250722
  Receipt Date: 20250722
  Transmission Date: 20251021
  Serious: Yes (Life-Threatening, Other)
  Sender: FDA-CTU
  Company Number: None

PATIENT
  Age: 11 Year
  Sex: Female
  Weight: 27 kg

DRUGS (2)
  1. ADVAIR HFA [Suspect]
     Active Substance: FLUTICASONE PROPIONATE\SALMETEROL XINAFOATE
     Indication: Asthma
  2. LEVALBUTEROL [Concomitant]
     Active Substance: LEVALBUTEROL

REACTIONS (7)
  - Dry throat [None]
  - Cough [None]
  - Throat tightness [None]
  - Heart rate increased [None]
  - Therapy cessation [None]
  - Chest pain [None]
  - Aortic dilatation [None]

NARRATIVE: CASE EVENT DATE: 20250509
